FAERS Safety Report 7399078-5 (Version None)
Quarter: 2011Q1

REPORT INFORMATION
  Report Type: 
  Country: None (occurrence: None)
  Receive Date: 20110328
  Receipt Date: 20101213
  Transmission Date: 20110831
  Serious: Yes (Other)
  Sender: FDA-Public Use
  Company Number: 2010P1003283

PATIENT
  Age: 71 Year
  Sex: Female
  Weight: 65.7716 kg

DRUGS (7)
  1. FENTANYL [Suspect]
     Indication: PAIN
     Dosage: 50 MCG/HR; PRN; FOR 24 HOUR; TDER
     Route: 062
     Dates: start: 20070101
  2. AMBIEN [Concomitant]
  3. PREVACID [Concomitant]
  4. LIDOCAINE JELLY [Concomitant]
  5. BENADRYL [Concomitant]
  6. ALDARA (IMIQUIMOD TOPICAL) [Concomitant]
  7. SINGULAIR [Concomitant]

REACTIONS (9)
  - NAUSEA [None]
  - PRURITUS [None]
  - PULMONARY MASS [None]
  - IMPAIRED WORK ABILITY [None]
  - INAPPROPRIATE SCHEDULE OF DRUG ADMINISTRATION [None]
  - ABDOMINAL PAIN UPPER [None]
  - VOMITING [None]
  - RASH [None]
  - SINUS CONGESTION [None]
